FAERS Safety Report 23028672 (Version 1)
Quarter: 2023Q4

REPORT INFORMATION
  Report Type: Spontaneous
  Country: US (occurrence: US)
  Receive Date: 20231004
  Receipt Date: 20231004
  Transmission Date: 20240109
  Serious: No
  Sender: FDA-Public Use
  Company Number: US-Horizon-KRY-0320-2020

PATIENT

DRUGS (5)
  1. KRYSTEXXA [Suspect]
     Active Substance: PEGLOTICASE
     Indication: Product used for unknown indication
     Dosage: UNK
     Route: 042
     Dates: start: 20200115
  2. ASPIRIN [Concomitant]
     Active Substance: ASPIRIN
  3. PREDNISONE [Concomitant]
     Active Substance: PREDNISONE
     Indication: Premedication
  4. COLCHICINE [Concomitant]
     Active Substance: COLCHICINE
     Indication: Premedication
  5. BYSTOLIC [Concomitant]
     Active Substance: NEBIVOLOL HYDROCHLORIDE
     Dosage: 10 MG, UNK

REACTIONS (14)
  - Gout [Recovered/Resolved]
  - Gout [Recovered/Resolved]
  - Gout [Recovered/Resolved]
  - Gout [Recovered/Resolved]
  - Contusion [Recovering/Resolving]
  - Rash [Recovered/Resolved]
  - Blood pressure increased [Recovering/Resolving]
  - Gout [Recovered/Resolved]
  - Gout [Recovered/Resolved]
  - Rash [Recovered/Resolved]
  - Rash [Recovered/Resolved]
  - Anxiety [Unknown]
  - Hypersensitivity [Unknown]
  - Intentional product use issue [Unknown]

NARRATIVE: CASE EVENT DATE: 20200101
